FAERS Safety Report 8181898 (Version 4)
Quarter: 2013Q3

REPORT INFORMATION
  Report Type: Spontaneous
  Country: FR (occurrence: FR)
  Receive Date: 20111014
  Receipt Date: 20130830
  Transmission Date: 20140515
  Serious: Yes (Hospitalization, Other)
  Sender: FDA-Public Use
  Company Number: FR-BRISTOL-MYERS SQUIBB COMPANY-16154536

PATIENT
  Age: 30 Year
  Sex: Female
  Weight: 60 kg

DRUGS (3)
  1. ABILIFY TABS 20 MG [Suspect]
     Indication: BORDERLINE PERSONALITY DISORDER
     Dosage: 10 MG IN THE MORNING AND 10 IN THE EVENING
     Route: 048
     Dates: start: 20110821, end: 201209
  2. TERCIAN [Suspect]
     Dosage: SINCE THE BEGINNING OF 2011
     Route: 048
     Dates: start: 2011
  3. SERESTA [Concomitant]
     Route: 048
     Dates: start: 2011

REACTIONS (2)
  - Ischaemic stroke [Not Recovered/Not Resolved]
  - Psychiatric symptom [Unknown]
